FAERS Safety Report 12520719 (Version 1)
Quarter: 2016Q3

REPORT INFORMATION
  Report Type: Spontaneous
  Country: FR (occurrence: FR)
  Receive Date: 20160701
  Receipt Date: 20160701
  Transmission Date: 20161109
  Serious: Yes (Hospitalization)
  Sender: FDA-Public Use
  Company Number: FR-009507513-1606FRA012314

PATIENT
  Age: 93 Year
  Sex: Male

DRUGS (2)
  1. NORSET [Suspect]
     Active Substance: MIRTAZAPINE
     Dosage: 1 DF, BID
     Route: 048
     Dates: start: 2012, end: 20160520
  2. UROREC [Suspect]
     Active Substance: SILODOSIN
     Indication: BENIGN PROSTATIC HYPERPLASIA
     Dosage: 1 DF, QD
     Route: 048
     Dates: start: 2013, end: 20160520

REACTIONS (3)
  - Orthostatic hypotension [Recovered/Resolved]
  - Malaise [Recovered/Resolved]
  - Fall [Recovered/Resolved]

NARRATIVE: CASE EVENT DATE: 20160520
